FAERS Safety Report 24344351 (Version 1)
Quarter: 2024Q3

REPORT INFORMATION
  Report Type: Spontaneous
  Country: US (occurrence: US)
  Receive Date: 20240920
  Receipt Date: 20240920
  Transmission Date: 20241017
  Serious: Yes (Other)
  Sender: THERATECHNOLOGIES
  Company Number: US-THERATECHNOLOGIES INC.-2024-THE-TES-000341

PATIENT

DRUGS (5)
  1. EGRIFTA SV [Suspect]
     Active Substance: TESAMORELIN ACETATE
     Indication: Lipodystrophy acquired
     Dosage: 1.4 MG, QD, RECONSTITUTE AND INJECT 0.35 ML
     Route: 058
     Dates: start: 20240716
  2. VIVOTIF BERNA [Concomitant]
     Indication: Product used for unknown indication
     Route: 065
  3. ATOVAQUONE [Concomitant]
     Active Substance: ATOVAQUONE
     Indication: Product used for unknown indication
     Route: 065
  4. PROGUANIL HCL [Concomitant]
     Indication: Product used for unknown indication
     Route: 065
  5. TRUVADA [Concomitant]
     Active Substance: EMTRICITABINE\TENOFOVIR DISOPROXIL FUMARATE
     Indication: Product used for unknown indication
     Route: 065

REACTIONS (3)
  - Neuropathy peripheral [Unknown]
  - Insomnia [Not Recovered/Not Resolved]
  - Joint swelling [Unknown]

NARRATIVE: CASE EVENT DATE: 20240723
